FAERS Safety Report 4433031-6 (Version None)
Quarter: 2004Q3

REPORT INFORMATION
  Report Type: 
  Country: None (occurrence: None)
  Receive Date: 20040721
  Receipt Date: 20030815
  Transmission Date: 20050211
  Serious: Yes (Life-Threatening, Hospitalization, Other)
  Sender: FDA-Public Use
  Company Number: WAES 0308USA01771

PATIENT
  Age: 89 Year
  Sex: Female
  Weight: 114.76 kg

DRUGS (5)
  1. VIOXX [Suspect]
     Indication: OSTEOARTHRITIS
     Dosage: 25 MG/DAILY/PO
     Route: 048
     Dates: start: 20040401, end: 20040405
  2. ALTACE [Concomitant]
  3. DARVOCET-N 100 [Concomitant]
  4. HUMALOG [Concomitant]
  5. CIPROFLOXACIN [Concomitant]

REACTIONS (2)
  - NEPHRITIS INTERSTITIAL [None]
  - RENAL FAILURE ACUTE [None]
